FAERS Safety Report 5301467-7 (Version None)
Quarter: 2007Q2

REPORT INFORMATION
  Report Type: 
  Country: None (occurrence: None)
  Receive Date: 20070412
  Receipt Date: 20070412
  Transmission Date: 20071010
  Serious: Yes (Hospitalization, Disabling)
  Sender: FDA-Public Use
  Company Number: 163-20785-06110132

PATIENT
  Age: 65 Year
  Sex: Male

DRUGS (3)
  1. THALOMID [Suspect]
     Indication: MULTIPLE MYELOMA
     Dosage: 100 MG, 2 IN 1 D, ORAL
     Route: 048
     Dates: start: 20061001, end: 20061106
  2. DECADRON [Concomitant]
  3. ZOMETA [Concomitant]

REACTIONS (2)
  - CARDIAC OPERATION [None]
  - PERONEAL NERVE PALSY [None]
